FAERS Safety Report 25333900 (Version 2)
Quarter: 2025Q2

REPORT INFORMATION
  Report Type: Report from Study
  Country: ZA (occurrence: ZA)
  Receive Date: 20250520
  Receipt Date: 20250529
  Transmission Date: 20250717
  Serious: Yes (Death, Hospitalization)
  Sender: AMGEN
  Company Number: ZA-AMGEN-ZAFSL2025096274

PATIENT
  Age: 74 Year
  Sex: Male

DRUGS (1)
  1. ARANESP [Suspect]
     Active Substance: DARBEPOETIN ALFA
     Indication: Product used for unknown indication
     Dosage: 40 MICROGRAM/0.4ML, QWK
     Route: 065
     Dates: start: 20250218, end: 20250327

REACTIONS (2)
  - Death [Fatal]
  - Device related sepsis [Unknown]

NARRATIVE: CASE EVENT DATE: 20250327
